FAERS Safety Report 6328930 (Version 4)
Quarter: 2019Q1

REPORT INFORMATION
  Report Type: Spontaneous
  Country: GB (occurrence: GB)
  Receive Date: 20070607
  Receipt Date: 20190107
  Transmission Date: 20190418
  Serious: Yes (Death, Other)
  Sender: FDA-Public Use
  Company Number: GB-SHR-GB-2007-020786

PATIENT
  Sex: Male

DRUGS (4)
  1. CAMPATH [Suspect]
     Active Substance: ALEMTUZUMAB
     Dosage: UNK UNK,UNK
     Route: 041
     Dates: start: 2007
  2. CARBOPLATIN. [Concomitant]
     Active Substance: CARBOPLATIN
     Route: 065
  3. IFOSFAMIDE. [Concomitant]
     Active Substance: IFOSFAMIDE
     Route: 065
  4. ETOPOSIDE. [Concomitant]
     Active Substance: ETOPOSIDE
     Route: 065

REACTIONS (1)
  - Malignant neoplasm progression [Fatal]

NARRATIVE: CASE EVENT DATE: 200705
